FAERS Safety Report 8162784-9 (Version None)
Quarter: 2012Q1

REPORT INFORMATION
  Report Type: 
  Country: None (occurrence: None)
  Receive Date: 20120224
  Receipt Date: 20120221
  Transmission Date: 20120608
  Serious: Yes (Hospitalization)
  Sender: FDA-Public Use
  Company Number: US-TEVA-324132USA

PATIENT
  Sex: Female
  Weight: 64.468 kg

DRUGS (12)
  1. ALLOPURINOL [Concomitant]
     Indication: PROPHYLAXIS
     Dosage: QD
     Route: 048
     Dates: end: 20120130
  2. OSTEO BI-FLEX [Concomitant]
  3. CETIRIZINE HCL [Concomitant]
  4. VITAMIN B COMPLEX CAP [Concomitant]
     Indication: VITAMIN SUPPLEMENTATION
  5. CALCIUM CARBONATE [Concomitant]
  6. XANTOFYL [Concomitant]
  7. ICAPS [Concomitant]
     Indication: MACULAR DEGENERATION
  8. ACETAMINOPHEN [Concomitant]
     Indication: PREMEDICATION
  9. HYDROCHLOROTHIAZIDE [Concomitant]
     Dosage: QD
     Route: 048
  10. TREANDA [Suspect]
     Indication: NON-HODGKIN'S LYMPHOMA
     Dosage: 1ST CYCLE, 100, 25 MG VIALS
     Route: 042
     Dates: start: 20120117
  11. ASCORBIC ACID [Concomitant]
     Indication: VITAMIN SUPPLEMENTATION
  12. BACTRIM [Concomitant]
     Indication: PROPHYLAXIS
     Dosage: MON, THURS
     Dates: end: 20120130

REACTIONS (5)
  - RASH ERYTHEMATOUS [None]
  - OEDEMA PERIPHERAL [None]
  - URINE OUTPUT DECREASED [None]
  - EXFOLIATIVE RASH [None]
  - DIZZINESS [None]
